FAERS Safety Report 6418363-4 (Version None)
Quarter: 2009Q4

REPORT INFORMATION
  Report Type: 
  Country: None (occurrence: None)
  Receive Date: 20091028
  Receipt Date: 20091021
  Transmission Date: 20100525
  Serious: Yes (Other)
  Sender: FDA-Public Use
  Company Number: GB-ABBOTT-09P-167-0604272-00

PATIENT
  Age: 32 Year
  Sex: Female

DRUGS (2)
  1. EPILIM TABLETS [Suspect]
     Indication: EPILEPSY
     Route: 048
     Dates: start: 19950101
  2. KWELLS [Suspect]
     Indication: MOTION SICKNESS
     Route: 048
     Dates: start: 20090819, end: 20090819

REACTIONS (2)
  - DRUG INEFFECTIVE [None]
  - MYOCLONIC EPILEPSY [None]
